FAERS Safety Report 6409358-5 (Version None)
Quarter: 2009Q4

REPORT INFORMATION
  Report Type: 
  Country: None (occurrence: None)
  Receive Date: 20091021
  Receipt Date: 20091013
  Transmission Date: 20100525
  Serious: Yes (Death, Hospitalization)
  Sender: FDA-Public Use
  Company Number: US-BAXTER-2008BH005475

PATIENT
  Age: 36 Year
  Sex: Male
  Weight: 97 kg

DRUGS (3)
  1. HEPARIN SODIUM INJECTION [Suspect]
     Indication: PROPHYLAXIS
     Route: 033
     Dates: start: 20070101, end: 20071201
  2. HEPARIN SODIUM INJECTION [Suspect]
     Route: 033
     Dates: start: 20071201
  3. HEPARIN [Concomitant]
     Indication: DIALYSIS
     Route: 065
     Dates: start: 20041201

REACTIONS (13)
  - ABDOMINAL PAIN [None]
  - BLOOD POTASSIUM INCREASED [None]
  - DEATH [None]
  - DECREASED APPETITE [None]
  - DIARRHOEA [None]
  - DIZZINESS [None]
  - HYPOTENSION [None]
  - LIP HAEMORRHAGE [None]
  - MALAISE [None]
  - RECTAL HAEMORRHAGE [None]
  - UNRESPONSIVE TO STIMULI [None]
  - URTICARIA [None]
  - VOMITING [None]
